FAERS Safety Report 4838586-5 (Version None)
Quarter: 2005Q4

REPORT INFORMATION
  Report Type: 
  Country: None (occurrence: None)
  Receive Date: 20051123
  Receipt Date: 20051123
  Transmission Date: 20060501
  Serious: No
  Sender: FDA-Public Use
  Company Number: None

PATIENT
  Age: 68 Year
  Sex: Male
  Weight: 79.2 kg

DRUGS (6)
  1. FLUOROURACIL [Suspect]
  2. DIPHENH [Concomitant]
  3. LIDOCAINE [Concomitant]
  4. MAALOX FAST BLOCKER [Concomitant]
  5. NYSTATIN [Concomitant]
  6. SILDENAFIL CITRATE [Concomitant]

REACTIONS (1)
  - STOMATITIS [None]
